FAERS Safety Report 6304251-0 (Version None)
Quarter: 2009Q3

REPORT INFORMATION
  Report Type: 
  Country: None (occurrence: None)
  Receive Date: 20090811
  Receipt Date: 20090729
  Transmission Date: 20100115
  Serious: Yes (Disabling)
  Sender: FDA-Public Use
  Company Number: US-ELI_LILLY_AND_COMPANY-US200908000079

PATIENT
  Age: 63 Year
  Sex: Male
  Weight: 90.703 kg

DRUGS (5)
  1. CIALIS [Suspect]
     Dosage: 20 MG, UNKNOWN
     Route: 065
  2. DIOVAN [Concomitant]
     Dosage: UNK, UNKNOWN
     Route: 065
  3. TOPRAL [Concomitant]
     Dosage: UNK, UNKNOWN
     Route: 065
  4. PRAVACHOL [Concomitant]
     Dosage: UNK, UNKNOWN
     Route: 065
  5. THYROID TAB [Concomitant]
     Dosage: UNK, UNKNOWN
     Route: 065

REACTIONS (6)
  - ANGER [None]
  - ANXIETY [None]
  - BACK PAIN [None]
  - DISABILITY [None]
  - DRUG DISPENSING ERROR [None]
  - NECK PAIN [None]
